FAERS Safety Report 22310938 (Version 1)
Quarter: 2023Q2

REPORT INFORMATION
  Report Type: Spontaneous
  Country: US (occurrence: None)
  Receive Date: 20230510
  Receipt Date: 20230510
  Transmission Date: 20230722
  Serious: No
  Sender: FDA-Public Use
  Company Number: None

PATIENT

DRUGS (1)
  1. THROMBATE III [Suspect]
     Active Substance: ANTITHROMBIN III HUMAN
     Dosage: OTHER STRENGTH : 500IU/10ML;?

REACTIONS (4)
  - Physical product label issue [None]
  - Product label confusion [None]
  - Product dose confusion [None]
  - Circumstance or information capable of leading to medication error [None]
